FAERS Safety Report 10207284 (Version 3)
Quarter: 2014Q2

REPORT INFORMATION
  Report Type: Spontaneous
  Country: US (occurrence: US)
  Receive Date: 20140530
  Receipt Date: 20140623
  Transmission Date: 20141212
  Serious: Yes (Death, Other)
  Sender: FDA-Public Use
  Company Number: US-BAXTER-2014BAX026073

PATIENT
  Age: 63 Year
  Sex: Female

DRUGS (1)
  1. DIANEAL LOW CALCIUM [Suspect]
     Indication: PERITONEAL DIALYSIS
     Route: 033
     Dates: start: 20121207, end: 201304

REACTIONS (3)
  - Myocardial infarction [Fatal]
  - Peritonitis [Recovered/Resolved]
  - Peritonitis [Unknown]
